FAERS Safety Report 18862428 (Version 3)
Quarter: 2021Q2

REPORT INFORMATION
  Report Type: Report from Study
  Country: MX (occurrence: MX)
  Receive Date: 20210208
  Receipt Date: 20210617
  Transmission Date: 20210717
  Serious: Yes (Other)
  Sender: FDA-Public Use
  Company Number: NVSC2020MX340747

PATIENT
  Age: 81 Year
  Sex: Female
  Weight: 67 kg

DRUGS (11)
  1. DIOVAN [Suspect]
     Active Substance: VALSARTAN
     Dosage: 2.5 DF, QD
     Route: 048
     Dates: start: 202009
  2. ALLOPURINOL. [Concomitant]
     Active Substance: ALLOPURINOL
     Indication: PRODUCT USED FOR UNKNOWN INDICATION
     Dosage: 1 DF, QD
     Route: 065
  3. DIOVAN [Suspect]
     Active Substance: VALSARTAN
     Indication: HYPERTENSION
     Dosage: 1.5 DF, BID
     Route: 048
  4. DIOVAN [Suspect]
     Active Substance: VALSARTAN
     Dosage: 1 AND A HALF IN THE MORNING AND 1 AT NIGHT
     Route: 065
     Dates: start: 202002, end: 20210318
  5. DIOVAN [Suspect]
     Active Substance: VALSARTAN
     Dosage: 2.5 DF (160 MG) QD, 1 AND HALF IN MORNING AND 1 AT NIGHT
     Route: 048
  6. DIOVAN [Suspect]
     Active Substance: VALSARTAN
     Dosage: 1 DF (160 MG), BID
     Route: 048
     Dates: start: 202002
  7. DIOVAN [Suspect]
     Active Substance: VALSARTAN
     Dosage: 2 DF, QD
     Route: 048
     Dates: start: 20190525
  8. DIOVAN [Suspect]
     Active Substance: VALSARTAN
     Dosage: 2.5 DF, QD
     Route: 048
     Dates: start: 202009
  9. ASPIRIN PROTECT [Concomitant]
     Active Substance: ASPIRIN
     Indication: PRODUCT USED FOR UNKNOWN INDICATION
     Dosage: 1 DF, QD
     Route: 065
  10. DIOVAN [Suspect]
     Active Substance: VALSARTAN
     Dosage: 160 MG (2.5 DF) (1 AND A HALF IN THE MORNING AND 1 IN THE AFTERNOON)
     Route: 048
     Dates: start: 201910
  11. DIOVAN [Suspect]
     Active Substance: VALSARTAN
     Dosage: 1 DF, BID
     Route: 048
     Dates: start: 202001

REACTIONS (9)
  - Off label use [Unknown]
  - Illness [Unknown]
  - Hypertension [Unknown]
  - Blood pressure fluctuation [Unknown]
  - Wrong technique in product usage process [Unknown]
  - Oropharyngeal discomfort [Unknown]
  - Blood pressure diastolic increased [Unknown]
  - Product prescribing error [Not Recovered/Not Resolved]
  - Drug ineffective [Unknown]

NARRATIVE: CASE EVENT DATE: 202008
